FAERS Safety Report 15752032 (Version 1)
Quarter: 2018Q4

REPORT INFORMATION
  Report Type: Spontaneous
  Country: US (occurrence: US)
  Receive Date: 20181221
  Receipt Date: 20181221
  Transmission Date: 20190205
  Serious: No
  Sender: FDA-Public Use
  Company Number: US-PFIZER INC-2018522480

PATIENT
  Age: 48 Year
  Sex: Male
  Weight: 81.65 kg

DRUGS (1)
  1. LYRICA [Suspect]
     Active Substance: PREGABALIN
     Indication: DIABETES MELLITUS
     Dosage: 225 MG, 2X/DAY
     Route: 048
     Dates: end: 201811

REACTIONS (5)
  - Burning sensation [Not Recovered/Not Resolved]
  - Gait inability [Not Recovered/Not Resolved]
  - Product use in unapproved indication [Unknown]
  - Paraesthesia [Not Recovered/Not Resolved]
  - Pain in extremity [Not Recovered/Not Resolved]

NARRATIVE: CASE EVENT DATE: 201811
